FAERS Safety Report 20834812 (Version 8)
Quarter: 2022Q4

REPORT INFORMATION
  Report Type: Report from Study
  Country: US (occurrence: US)
  Receive Date: 20220516
  Receipt Date: 20221029
  Transmission Date: 20230112
  Serious: Yes (Hospitalization)
  Sender: FDA-Public Use
  Company Number: US-NOVARTISTESTPH-NVSC2022US112167

PATIENT
  Age: 69 Year
  Sex: Female

DRUGS (1)
  1. KESIMPTA [Suspect]
     Active Substance: OFATUMUMAB
     Indication: Product used for unknown indication
     Dosage: 20 MG, QMO
     Route: 058
     Dates: start: 20220413

REACTIONS (5)
  - Dehydration [Unknown]
  - Asthenia [Not Recovered/Not Resolved]
  - Dysstasia [Unknown]
  - Hypersomnia [Unknown]
  - Wound [Unknown]

NARRATIVE: CASE EVENT DATE: 20220420
